FAERS Safety Report 10251094 (Version 1)
Quarter: 2014Q2

REPORT INFORMATION
  Report Type: Spontaneous
  Country: US (occurrence: US)
  Receive Date: 20140620
  Receipt Date: 20140620
  Transmission Date: 20141212
  Serious: No
  Sender: FDA-Public Use
  Company Number: US-TEVA-490008USA

PATIENT
  Age: 31 Year
  Sex: Female
  Weight: 69.92 kg

DRUGS (2)
  1. TAKE ACTION [Suspect]
     Indication: POST COITAL CONTRACEPTION
     Dosage: 1.5 MILLIGRAM DAILY;
     Route: 048
     Dates: start: 20140605, end: 20140605
  2. ZYRTEC [Concomitant]
     Indication: SEASONAL ALLERGY

REACTIONS (3)
  - Menstruation irregular [Not Recovered/Not Resolved]
  - Breast tenderness [Not Recovered/Not Resolved]
  - Dysmenorrhoea [Not Recovered/Not Resolved]
